FAERS Safety Report 7346627-9 (Version None)
Quarter: 2011Q1

REPORT INFORMATION
  Report Type: 
  Country: None (occurrence: None)
  Receive Date: 20110311
  Receipt Date: 20110304
  Transmission Date: 20110831
  Serious: Yes (Hospitalization)
  Sender: FDA-Public Use
  Company Number: IE-MEDIMMUNE-MEDI-0012803

PATIENT
  Sex: Female

DRUGS (4)
  1. KAPSOVIT [Concomitant]
  2. FERROUS SULFATE TAB [Concomitant]
  3. SYNAGIS [Suspect]
     Route: 030
     Dates: start: 20101101
  4. SYNAGIS [Suspect]

REACTIONS (1)
  - CEREBROVASCULAR ACCIDENT [None]
